FAERS Safety Report 19801763 (Version 1)
Quarter: 2021Q3

REPORT INFORMATION
  Report Type: Spontaneous
  Country: JP (occurrence: JP)
  Receive Date: 20210907
  Receipt Date: 20210907
  Transmission Date: 20211014
  Serious: Yes (Death, Other)
  Sender: FDA-Public Use
  Company Number: JP-AMGEN-JPNSP2021138660

PATIENT
  Age: 20 Year
  Sex: Female

DRUGS (2)
  1. RANMARK [Suspect]
     Active Substance: DENOSUMAB
     Indication: METASTASES TO LUNG
     Dosage: 120 MG, ONCE EVERY 4 WK
     Route: 065
  2. RANMARK [Suspect]
     Active Substance: DENOSUMAB
     Indication: BONE GIANT CELL TUMOUR
     Dosage: 120 MG, ON DAY 8 AND 15
     Route: 065

REACTIONS (2)
  - Malignant transformation [Unknown]
  - Metastases to lung [Fatal]
